FAERS Safety Report 15089664 (Version 1)
Quarter: 2018Q2

REPORT INFORMATION
  Report Type: Spontaneous
  Country: US (occurrence: US)
  Receive Date: 20180608
  Receipt Date: 20180608
  Transmission Date: 20180711
  Serious: Yes (Hospitalization, Other)
  Sender: FDA-Public Use
  Company Number: None

PATIENT
  Age: 84 Year
  Sex: Female
  Weight: 72.2 kg

DRUGS (3)
  1. HYDRALAZINE IV PUSH [Concomitant]
     Dates: start: 20180607, end: 20180607
  2. NICARDIPINE IV INFUSION [Concomitant]
     Dates: start: 20180607, end: 20180607
  3. ACTIVASE [Suspect]
     Active Substance: ALTEPLASE
     Indication: ISCHAEMIC STROKE
     Route: 042

REACTIONS (1)
  - Angioedema [None]

NARRATIVE: CASE EVENT DATE: 20180607
